FAERS Safety Report 7632998-2 (Version None)
Quarter: 2011Q3

REPORT INFORMATION
  Report Type: 
  Country: None (occurrence: None)
  Receive Date: 20110725
  Receipt Date: 20110720
  Transmission Date: 20111222
  Serious: No
  Sender: FDA-Public Use
  Company Number: PHHY2011US65550

PATIENT
  Sex: Male

DRUGS (4)
  1. CLARITIN [Concomitant]
     Dosage: UNK
  2. GLEEVEC [Suspect]
     Indication: CHRONIC MYELOID LEUKAEMIA
     Dosage: 400 MG, QD
     Route: 048
  3. TASIGNA [Suspect]
     Indication: CHRONIC MYELOID LEUKAEMIA
     Dosage: 300 MG, BID
     Route: 048
     Dates: start: 20101201
  4. LISINOPRIL [Concomitant]
     Dosage: UNK

REACTIONS (2)
  - RASH [None]
  - BLISTER [None]
